FAERS Safety Report 9687547 (Version 2)
Quarter: 2014Q2

REPORT INFORMATION
  Report Type: Spontaneous
  Country: BR (occurrence: BR)
  Receive Date: 20131114
  Receipt Date: 20140407
  Transmission Date: 20141212
  Serious: Yes (Other)
  Sender: FDA-Public Use
  Company Number: BR-JNJFOC-20131105380

PATIENT
  Age: 56 Year
  Sex: Male
  Weight: 88 kg

DRUGS (2)
  1. SIMPONI [Suspect]
     Indication: RHEUMATOID ARTHRITIS
     Route: 058
     Dates: start: 201305
  2. ANTAK [Concomitant]
     Indication: BLOOD PRESSURE
     Route: 065

REACTIONS (4)
  - Tonsillitis [Recovered/Resolved]
  - Pneumonia [Recovered/Resolved]
  - Drug ineffective [Not Recovered/Not Resolved]
  - Synovitis [Unknown]
